FAERS Safety Report 25188094 (Version 2)
Quarter: 2025Q2

REPORT INFORMATION
  Report Type: Spontaneous
  Country: FR (occurrence: FR)
  Receive Date: 20250411
  Receipt Date: 20250416
  Transmission Date: 20250717
  Serious: Yes (Other)
  Sender: TEVA
  Company Number: FR-TEVA-VS-3316314

PATIENT
  Age: 52 Year
  Sex: Female

DRUGS (4)
  1. ACTIQ [Suspect]
     Active Substance: FENTANYL CITRATE
     Indication: Endometriosis
     Route: 065
     Dates: start: 202005
  2. ACTIQ [Suspect]
     Active Substance: FENTANYL CITRATE
     Indication: Endometriosis
     Route: 065
     Dates: start: 202005
  3. ACTIQ [Suspect]
     Active Substance: FENTANYL CITRATE
     Indication: Endometriosis
     Route: 065
     Dates: start: 202503
  4. FENTANYL [Concomitant]
     Active Substance: FENTANYL
     Indication: Product used for unknown indication
     Dosage: DOSE: 100 MCG PER HOUR AT THE DOSAGE OF ONE PATCH EVERY THREE DAYS.
     Route: 065

REACTIONS (12)
  - Drug dependence [Not Recovered/Not Resolved]
  - Overdose [Unknown]
  - Product use in unapproved indication [Unknown]
  - Incorrect dose administered [Unknown]
  - Intercepted medication error [Unknown]
  - Weight increased [Recovered/Resolved]
  - Tooth loss [Not Recovered/Not Resolved]
  - Hyperhidrosis [Not Recovered/Not Resolved]
  - Drug withdrawal syndrome [Not Recovered/Not Resolved]
  - Behavioural addiction [Unknown]
  - Product prescribing issue [Unknown]
  - Drug diversion [Unknown]
